FAERS Safety Report 4642433-4 (Version None)
Quarter: 2005Q2

REPORT INFORMATION
  Report Type: 
  Country: None (occurrence: None)
  Receive Date: 20050420
  Receipt Date: 20050330
  Transmission Date: 20051028
  Serious: Yes (Hospitalization)
  Sender: FDA-Public Use
  Company Number: 2005AP01975

PATIENT
  Sex: Female

DRUGS (4)
  1. BUDESONIDE + FORMOTEROL (SYMBICORT) [Suspect]
     Indication: ASTHMA
  2. BUDESONIDE + FORMOTEROL (SYMBICORT) [Suspect]
     Indication: ASTHMA
     Dosage: 400/12 MCG
     Dates: start: 20050311, end: 20050326
  3. THYROXINE ^APS^ [Concomitant]
  4. VENTOLIN HFA [Concomitant]

REACTIONS (4)
  - ANAPHYLACTOID REACTION [None]
  - ASTHMA [None]
  - BLISTER [None]
  - PHARYNGEAL ERYTHEMA [None]
